FAERS Safety Report 5744694-7 (Version None)
Quarter: 2008Q2

REPORT INFORMATION
  Report Type: 
  Country: None (occurrence: None)
  Receive Date: 20080520
  Receipt Date: 20080513
  Transmission Date: 20081010
  Serious: Yes (Hospitalization, Other)
  Sender: FDA-Public Use
  Company Number: US-PFIZER INC-2008041616

PATIENT
  Sex: Female
  Weight: 52.272 kg

DRUGS (2)
  1. CHANTIX [Suspect]
     Indication: SMOKING CESSATION THERAPY
     Dates: start: 20070101, end: 20070201
  2. ALPRAZOLAM [Concomitant]

REACTIONS (3)
  - ALCOHOL ABUSE [None]
  - DEPRESSION [None]
  - SUICIDE ATTEMPT [None]
